FAERS Safety Report 10336638 (Version 1)
Quarter: 2014Q3

REPORT INFORMATION
  Report Type: Spontaneous
  Country: FR (occurrence: FR)
  Receive Date: 20140723
  Receipt Date: 20140723
  Transmission Date: 20150326
  Serious: Yes (Hospitalization)
  Sender: FDA-Public Use
  Company Number: FR-PFIZER INC-2014200808

PATIENT
  Age: 74 Year
  Sex: Male

DRUGS (15)
  1. PIPERACILLINE / TAZOBACTAM MYLAN [Suspect]
     Active Substance: PIPERACILLIN SODIUM\TAZOBACTAM SODIUM
     Indication: ARTHRITIS BACTERIAL
     Dosage: 4 G, 3X/DAY
     Route: 042
     Dates: start: 20140527, end: 20140617
  2. LASILIX [Concomitant]
     Active Substance: FUROSEMIDE
     Dosage: 80 MG, DAILY
  3. LYRICA [Suspect]
     Active Substance: PREGABALIN
     Indication: PAIN
     Dosage: 75 MG, DAILY
     Dates: start: 20140526, end: 20140527
  4. LOVENOX [Suspect]
     Active Substance: ENOXAPARIN SODIUM
     Indication: ANTICOAGULANT THERAPY
     Dosage: 7000 IU, 2X/DAY
     Route: 058
     Dates: start: 20140528, end: 20140606
  5. CARDENSIEL [Concomitant]
     Active Substance: BISOPROLOL FUMARATE
     Dosage: 5 MG, 1X/DAY
  6. CRESTOR [Concomitant]
     Active Substance: ROSUVASTATIN CALCIUM
  7. LYRICA [Suspect]
     Active Substance: PREGABALIN
     Dosage: 150 MG, DAILY
     Route: 048
     Dates: start: 20140528, end: 20140528
  8. MYLAN VANCOMYCIN [Suspect]
     Active Substance: VANCOMYCIN
     Indication: ARTHRITIS BACTERIAL
     Dosage: 500 MG, 3X/DAY
     Route: 042
     Dates: start: 20140527, end: 20140529
  9. MYLAN VANCOMYCIN [Suspect]
     Active Substance: VANCOMYCIN
     Dosage: 500 MG, 2X/DAY
     Route: 042
     Dates: start: 20140530, end: 20140610
  10. ZOLOFT [Concomitant]
     Active Substance: SERTRALINE HYDROCHLORIDE
     Dosage: UNK
     Dates: start: 2013
  11. DOLIPRANE [Concomitant]
     Active Substance: ACETAMINOPHEN
  12. ROPIVACAINE KABI [Suspect]
     Active Substance: ROPIVACAINE
     Indication: PAIN
     Dosage: UNK
     Route: 042
     Dates: start: 20140527, end: 20140529
  13. GENTAMICIN ^PANPHARMA^ [Suspect]
     Active Substance: GENTAMICIN
     Indication: ARTHRITIS BACTERIAL
     Dosage: 500 MG, DAILY
     Route: 042
     Dates: start: 20140527, end: 20140528
  14. COUMADINE [Concomitant]
     Active Substance: WARFARIN SODIUM
  15. CORTANCYL [Concomitant]
     Active Substance: PREDNISONE
     Dosage: 6 MG, DAILY

REACTIONS (2)
  - Histiocytosis haematophagic [Not Recovered/Not Resolved]
  - Drug reaction with eosinophilia and systemic symptoms [Not Recovered/Not Resolved]

NARRATIVE: CASE EVENT DATE: 20140610
